FAERS Safety Report 8594616-9 (Version None)
Quarter: 2012Q3

REPORT INFORMATION
  Report Type: 
  Country: None (occurrence: None)
  Receive Date: 20120815
  Receipt Date: 20120808
  Transmission Date: 20120928
  Serious: No
  Sender: FDA-Public Use
  Company Number: US-PFIZER INC-2012180081

PATIENT
  Age: 71 Year
  Sex: Male
  Weight: 92.1 kg

DRUGS (9)
  1. SUTENT [Suspect]
     Indication: RENAL CANCER METASTATIC
     Dosage: 50 MG, UNK
     Dates: start: 20120720
  2. HYDROCODONE [Concomitant]
     Indication: PAIN
     Dosage: 10 MG, AS NEEDED
  3. JANUVIA [Concomitant]
     Dosage: UNK
  4. TIZANIDINE [Concomitant]
     Indication: MUSCLE SPASMS
     Dosage: 2 MG, AT BED TIME
  5. AMLODIPINE [Concomitant]
     Dosage: UNK
  6. ASPIRIN [Concomitant]
     Dosage: 81 MG, DAILY
  7. TYLENOL [Concomitant]
     Indication: PAIN
     Dosage: 325 MG, AS NEEDED
  8. INDAPAMIDE [Concomitant]
     Dosage: UNK
  9. SERTRALINE [Concomitant]
     Dosage: UNK

REACTIONS (7)
  - ABDOMINAL DISCOMFORT [None]
  - DYSGEUSIA [None]
  - FATIGUE [None]
  - RENAL CANCER METASTATIC [None]
  - DISEASE PROGRESSION [None]
  - WEIGHT DECREASED [None]
  - NAUSEA [None]
